FAERS Safety Report 5696333-1 (Version None)
Quarter: 2008Q2

REPORT INFORMATION
  Report Type: 
  Country: None (occurrence: None)
  Receive Date: 20080331
  Receipt Date: 20070330
  Transmission Date: 20081010
  Serious: Yes (Other)
  Sender: FDA-Public Use
  Company Number: 012150

PATIENT
  Age: 8 Year
  Sex: Male

DRUGS (1)
  1. ADDERALL 10 [Suspect]
     Indication: ATTENTION DEFICIT/HYPERACTIVITY DISORDER
     Dosage: 10 MG, QD, ORAL
     Route: 048
     Dates: start: 20060901, end: 20061201

REACTIONS (2)
  - HEART RATE IRREGULAR [None]
  - HYPERTENSION [None]
